FAERS Safety Report 23053124 (Version 1)
Quarter: 2023Q4

REPORT INFORMATION
  Report Type: Spontaneous
  Country: US (occurrence: US)
  Receive Date: 20231011
  Receipt Date: 20231011
  Transmission Date: 20240110
  Serious: Yes (Other)
  Sender: FDA-Public Use
  Company Number: US-OPELLA-2023OHG010491

PATIENT
  Age: 84 Year
  Sex: Male
  Weight: 76.6 kg

DRUGS (6)
  1. GOLD BOND ORIGINAL STRENGTH POWDER [Suspect]
     Active Substance: MENTHOL\ZINC OXIDE
  2. MELATONIN [Concomitant]
     Active Substance: MELATONIN
     Dosage: 3 MG TABLET 1 TABLET AT BEDTIME AS NEEDED ONCE A DAY
  3. FARXIGA [Concomitant]
     Active Substance: DAPAGLIFLOZIN PROPANEDIOL
     Route: 048
  4. TAMSULOSIN HYDROCHLORIDE [Concomitant]
     Active Substance: TAMSULOSIN HYDROCHLORIDE
     Route: 048
  5. DIGOXIN [Concomitant]
     Active Substance: DIGOXIN
     Route: 048
  6. ELIQUIS [Concomitant]
     Active Substance: APIXABAN
     Route: 048

REACTIONS (1)
  - Mesothelioma [Not Recovered/Not Resolved]
